FAERS Safety Report 5760969-X (Version None)
Quarter: 2008Q2

REPORT INFORMATION
  Report Type: 
  Country: None (occurrence: None)
  Receive Date: 20080606
  Receipt Date: 20070801
  Transmission Date: 20081010
  Serious: No
  Sender: FDA-Public Use
  Company Number: US-ASTRAZENECA-2008UW03688

PATIENT
  Age: 12 Year
  Sex: Female
  Weight: 39.4 kg

DRUGS (3)
  1. PRILOSEC [Suspect]
     Indication: GASTROOESOPHAGEAL REFLUX DISEASE
     Route: 048
  2. ANIPIPRAZOLE [Concomitant]
  3. VENLAFAXINE HCL [Concomitant]

REACTIONS (1)
  - ABNORMAL FAECES [None]
